FAERS Safety Report 9900970 (Version 1)
Quarter: 2014Q1

REPORT INFORMATION
  Report Type: Spontaneous
  Country: US (occurrence: US)
  Receive Date: 20140217
  Receipt Date: 20140217
  Transmission Date: 20141002
  Serious: No
  Sender: FDA-Public Use
  Company Number: US-ABBVIE-13P-163-1068458-00

PATIENT
  Age: 65 Year
  Sex: Female

DRUGS (2)
  1. SIMCOR 1000/20 [Suspect]
     Indication: BLOOD CHOLESTEROL INCREASED
     Dosage: 1000/20  MILLIGRAM
     Dates: start: 2008
  2. SIMCOR 1000/20 [Suspect]
     Indication: BLOOD TRIGLYCERIDES INCREASED

REACTIONS (1)
  - Rash [Recovered/Resolved]
